FAERS Safety Report 10204434 (Version 1)
Quarter: 2014Q2

REPORT INFORMATION
  Report Type: Spontaneous
  Country: US (occurrence: US)
  Receive Date: 20140529
  Receipt Date: 20140529
  Transmission Date: 20141212
  Serious: Yes (Other)
  Sender: FDA-Public Use
  Company Number: US-BAYER-2014-075190

PATIENT
  Sex: Female

DRUGS (1)
  1. MIRENA [Suspect]
     Dosage: 20 MCG/24HR, CONT
     Route: 015
     Dates: start: 20130221, end: 2013

REACTIONS (12)
  - Embedded device [None]
  - Uterine adhesions [None]
  - Device deployment issue [None]
  - Injury [None]
  - Psychological trauma [None]
  - Pain [None]
  - Asthenia [None]
  - Decreased activity [None]
  - Emotional distress [None]
  - Anger [None]
  - Frustration [None]
  - Anxiety [None]
